FAERS Safety Report 4650990-7 (Version None)
Quarter: 2005Q2

REPORT INFORMATION
  Report Type: 
  Country: None (occurrence: None)
  Receive Date: 20050503
  Receipt Date: 20050421
  Transmission Date: 20051028
  Serious: Yes (Other)
  Sender: FDA-Public Use
  Company Number: BE-BRISTOL-MYERS SQUIBB COMPANY-12942579

PATIENT

DRUGS (2)
  1. IRBESARTAN [Suspect]
     Route: 048
  2. TRAMADOL [Concomitant]

REACTIONS (1)
  - SUICIDE ATTEMPT [None]
